FAERS Safety Report 10209982 (Version 2)
Quarter: 2014Q2

REPORT INFORMATION
  Report Type: Spontaneous
  Country: DE (occurrence: DE)
  Receive Date: 20140602
  Receipt Date: 20140627
  Transmission Date: 20141212
  Serious: Yes (Hospitalization, Other)
  Sender: FDA-Public Use
  Company Number: DE-JNJFOC-20140513031

PATIENT
  Age: 58 Year
  Sex: Female

DRUGS (7)
  1. DUROGESIC SMAT [Suspect]
     Indication: FEMORAL NECK FRACTURE
     Route: 062
     Dates: start: 20140509, end: 20140510
  2. DUROGESIC SMAT [Suspect]
     Indication: PELVIC FRACTURE
     Route: 062
     Dates: start: 20140509, end: 20140510
  3. DIPIDOLOR [Suspect]
     Indication: FEMORAL NECK FRACTURE
     Route: 042
  4. DIPIDOLOR [Suspect]
     Indication: PELVIC FRACTURE
     Route: 042
  5. OXYCODON [Suspect]
     Indication: FEMORAL NECK FRACTURE
     Dosage: 40X8
     Route: 065
  6. OXYCODON [Suspect]
     Indication: PELVIC FRACTURE
     Dosage: 40X8
     Route: 065
  7. OXYGESIC [Concomitant]
     Indication: PRODUCT USED FOR UNKNOWN INDICATION
     Dosage: 4 X 80
     Route: 048

REACTIONS (3)
  - Convulsion [Unknown]
  - Loss of consciousness [Unknown]
  - Nausea [Unknown]
